FAERS Safety Report 16213802 (Version 2)
Quarter: 2019Q2

REPORT INFORMATION
  Report Type: Report from Study
  Country: GB (occurrence: GB)
  Receive Date: 20190418
  Receipt Date: 20190628
  Transmission Date: 20190711
  Serious: Yes (Other)
  Sender: FDA-Public Use
  Company Number: GB-BAUSCH-BL-2019-000821

PATIENT
  Age: 39 Year
  Sex: Male

DRUGS (2)
  1. KYNTHEUM [Suspect]
     Active Substance: BRODALUMAB
     Dosage: 210MG 0, 1, 2 AND THEN EVERY 2 WEEKS
     Route: 058
     Dates: start: 2018
  2. KYNTHEUM [Suspect]
     Active Substance: BRODALUMAB
     Indication: PSORIASIS
     Dosage: 210 MG IN 0, 1, 2 WEEKS AND THEN EVERY 2 WEEKS
     Route: 058
     Dates: start: 20181029, end: 2018

REACTIONS (7)
  - Type 2 diabetes mellitus [Unknown]
  - Gout [Unknown]
  - Sleep apnoea syndrome [Unknown]
  - Psoriatic arthropathy [Unknown]
  - Arthropathy [Not Recovered/Not Resolved]
  - Bursa disorder [Not Recovered/Not Resolved]
  - Drug ineffective [Unknown]
